FAERS Safety Report 4921590-6 (Version None)
Quarter: 2006Q1

REPORT INFORMATION
  Report Type: 
  Country: None (occurrence: None)
  Receive Date: 20060221
  Receipt Date: 20060209
  Transmission Date: 20060701
  Serious: Yes (Death, Other)
  Sender: FDA-Public Use
  Company Number: 2006020901

PATIENT
  Age: 70 Year
  Sex: Male

DRUGS (1)
  1. CELEBREX [Suspect]
     Indication: ARTHRITIS

REACTIONS (10)
  - BLISTER [None]
  - DYSARTHRIA [None]
  - FLUID RETENTION [None]
  - HEMIPLEGIA [None]
  - MALAISE [None]
  - OESOPHAGEAL STENOSIS [None]
  - OESOPHAGEAL ULCER [None]
  - PNEUMONIA [None]
  - RESPIRATORY DISORDER [None]
  - VOMITING [None]
